FAERS Safety Report 10252452 (Version 1)
Quarter: 2014Q2

REPORT INFORMATION
  Report Type: Spontaneous
  Country: US (occurrence: None)
  Receive Date: 20140619
  Receipt Date: 20140619
  Transmission Date: 20141212
  Serious: Yes (Hospitalization)
  Sender: FDA-Public Use
  Company Number: UNT-2014-002104

PATIENT
  Age: 5 Year
  Sex: Female
  Weight: 14.1 kg

DRUGS (4)
  1. REMODULIN (TREPROSTINIL SODIUM) INJECTION, 1MG/ML [Suspect]
     Indication: PULMONARY ARTERIAL HYPERTENSION
     Route: 041
     Dates: start: 20111004
  2. MILRINONE (MILRINONE) [Suspect]
     Indication: PRODUCT USED FOR UNKNOWN INDICATION
  3. TRACLEER (BOSENTAN) [Concomitant]
  4. SILDENAFIL (SILDENAFIL) [Concomitant]

REACTIONS (1)
  - Pulmonary arterial pressure increased [None]
